FAERS Safety Report 7023301-X (Version None)
Quarter: 2010Q3

REPORT INFORMATION
  Report Type: 
  Country: None (occurrence: None)
  Receive Date: 20100930
  Receipt Date: 20100916
  Transmission Date: 20110219
  Serious: Yes (Hospitalization)
  Sender: FDA-Public Use
  Company Number: FR-PFIZER INC-2010117342

PATIENT
  Age: 49 Year
  Sex: Female

DRUGS (4)
  1. LYRICA [Suspect]
     Dosage: 100 MG, 2X/DAY
     Route: 048
     Dates: start: 20080601, end: 20090629
  2. PARIET [Suspect]
     Dosage: UNK
     Route: 048
     Dates: end: 20090629
  3. TOPALGIC [Concomitant]
     Dosage: 1 DF, 2X/DAY
  4. DOLIPRANE [Concomitant]

REACTIONS (2)
  - LEUKOPENIA [None]
  - NEUTROPENIA [None]
